FAERS Safety Report 5915540-3 (Version None)
Quarter: 2008Q4

REPORT INFORMATION
  Report Type: 
  Country: None (occurrence: None)
  Receive Date: 20081010
  Receipt Date: 20080710
  Transmission Date: 20090506
  Serious: No
  Sender: FDA-Public Use
  Company Number: A0736966A

PATIENT
  Sex: Female

DRUGS (1)
  1. TYKERB [Suspect]
     Indication: BREAST CANCER
     Route: 048

REACTIONS (1)
  - VISUAL IMPAIRMENT [None]
